FAERS Safety Report 8985961 (Version 1)
Quarter: 2012Q4

REPORT INFORMATION
  Report Type: 
  Country: US (occurrence: US)
  Receive Date: 20121226
  Receipt Date: 20121226
  Transmission Date: 20130627
  Serious: No
  Sender: FDA-Public Use
  Company Number: US-ABBOTT-12P-163-0912406-00

PATIENT
  Sex: Male
  Weight: 109.87 kg

DRUGS (3)
  1. LUPRON DEPOT 30 MG [Suspect]
     Indication: PROSTATE CANCER METASTATIC
     Route: 050
     Dates: start: 201106
  2. LORTAB [Concomitant]
     Indication: PANCREATITIS
     Route: 048
  3. MEGACE [Concomitant]
     Indication: HOT FLUSH

REACTIONS (6)
  - Dyspnoea [Not Recovered/Not Resolved]
  - Chest discomfort [Not Recovered/Not Resolved]
  - Pain in extremity [Not Recovered/Not Resolved]
  - Hot flush [Recovering/Resolving]
  - Weight increased [Not Recovered/Not Resolved]
  - Fatigue [Not Recovered/Not Resolved]
